FAERS Safety Report 9134017 (Version 2)
Quarter: 2013Q4

REPORT INFORMATION
  Report Type: Spontaneous
  Country: CA (occurrence: CA)
  Receive Date: 20130304
  Receipt Date: 20131015
  Transmission Date: 20140711
  Serious: Yes (Hospitalization)
  Sender: FDA-Public Use
  Company Number: CA-AMGEN-CANSP2013012719

PATIENT
  Age: 61 Year
  Sex: Male

DRUGS (1)
  1. PROLIA [Suspect]
     Indication: OSTEOPOROSIS
     Dosage: UNK
     Route: 065
     Dates: start: 20110810, end: 20130212

REACTIONS (6)
  - Nephrolithiasis [Recovered/Resolved]
  - Gastric disorder [Unknown]
  - Blood calcium increased [Unknown]
  - Alopecia [Recovered/Resolved]
  - Oesophageal disorder [Not Recovered/Not Resolved]
  - Gastrooesophageal reflux disease [Not Recovered/Not Resolved]
